FAERS Safety Report 17602331 (Version 1)
Quarter: 2020Q1

REPORT INFORMATION
  Report Type: Report from Study
  Country: None (occurrence: US)
  Receive Date: 20200331
  Receipt Date: 20200331
  Transmission Date: 20200409
  Serious: Yes (Other)
  Sender: FDA-Public Use
  Company Number: US-ABBVIE-20K-163-3344229-00

PATIENT
  Sex: Male

DRUGS (1)
  1. HUMIRA [Suspect]
     Active Substance: ADALIMUMAB
     Indication: CROHN^S DISEASE
     Route: 058
     Dates: start: 201501

REACTIONS (9)
  - Paraesthesia [Unknown]
  - Injection site pruritus [Recovered/Resolved]
  - Hallucination [Unknown]
  - Visual impairment [Unknown]
  - Dizziness [Unknown]
  - Injection site erythema [Recovered/Resolved]
  - Muscular weakness [Unknown]
  - Lyme disease [Recovering/Resolving]
  - End stage renal disease [Unknown]

NARRATIVE: CASE EVENT DATE: 2015
